FAERS Safety Report 14453310 (Version 1)
Quarter: 2018Q1

REPORT INFORMATION
  Report Type: Spontaneous
  Country: AU (occurrence: AU)
  Receive Date: 20180129
  Receipt Date: 20180129
  Transmission Date: 20180509
  Serious: Yes (Hospitalization)
  Sender: FDA-Public Use
  Company Number: AU-SA-2018SA015624

PATIENT
  Sex: Female

DRUGS (2)
  1. LANTUS [Suspect]
     Active Substance: INSULIN GLARGINE
     Route: 051
  2. NOVORAPID [Suspect]
     Active Substance: INSULIN ASPART
     Route: 051

REACTIONS (5)
  - Seizure [Unknown]
  - Cardiac arrest [Unknown]
  - Brain oedema [Unknown]
  - Blood glucose fluctuation [Unknown]
  - Diabetes mellitus management [Unknown]
